FAERS Safety Report 7239988-2 (Version None)
Quarter: 2011Q1

REPORT INFORMATION
  Report Type: 
  Country: None (occurrence: None)
  Receive Date: 20110124
  Receipt Date: 20110112
  Transmission Date: 20110831
  Serious: No
  Sender: FDA-Public Use
  Company Number: US-BIOGENIDEC-2010BI030712

PATIENT
  Sex: Female

DRUGS (1)
  1. TYSABRI [Suspect]
     Indication: MULTIPLE SCLEROSIS
     Route: 042
     Dates: start: 20100330

REACTIONS (5)
  - MUSCULAR WEAKNESS [None]
  - VITAMIN B12 DECREASED [None]
  - FATIGUE [None]
  - JOINT INSTABILITY [None]
  - ASTHENIA [None]
